FAERS Safety Report 25586727 (Version 2)
Quarter: 2025Q3

REPORT INFORMATION
  Report Type: Report from Study
  Country: US (occurrence: US)
  Receive Date: 20250721
  Receipt Date: 20250819
  Transmission Date: 20251021
  Serious: Yes (Other)
  Sender: PFIZER
  Company Number: US-PFIZER INC-202500145166

PATIENT
  Age: 66 Year
  Sex: Male

DRUGS (11)
  1. LORBRENA [Suspect]
     Active Substance: LORLATINIB
     Indication: Lung cancer metastatic
     Dosage: 100 MG, DAILY (ONE 100MG TABLET ORALLY DAILY)
     Route: 048
     Dates: start: 202506, end: 202507
  2. LORBRENA [Suspect]
     Active Substance: LORLATINIB
     Dosage: TWO 25MG TABLETS DAILY
     Route: 048
     Dates: start: 202507
  3. ASPIRIN [Concomitant]
     Active Substance: ASPIRIN
  4. ATORVASTATIN [Concomitant]
     Active Substance: ATORVASTATIN
  5. DEMANNOSE [Concomitant]
     Active Substance: DEMANNOSE
  6. DICYCLOMINE [Concomitant]
     Active Substance: DICYCLOMINE HYDROCHLORIDE
     Indication: Gastrointestinal disorder
  7. FOLIC ACID [Concomitant]
     Active Substance: FOLIC ACID
  8. ACETAMINOPHEN\HYDROCODONE [Concomitant]
     Active Substance: ACETAMINOPHEN\HYDROCODONE
  9. KEPPRA [Concomitant]
     Active Substance: LEVETIRACETAM
  10. VITAMINS NOS [Concomitant]
     Active Substance: VITAMINS
  11. PROBIOTIC [BIFIDOBACTERIUM BIFIDUM;BIFIDOBACTERIUM LACTIS;BIFIDOBACTER [Concomitant]

REACTIONS (10)
  - Hallucination [Not Recovered/Not Resolved]
  - Hallucination, auditory [Not Recovered/Not Resolved]
  - Hypersomnia [Not Recovered/Not Resolved]
  - Confusional state [Not Recovered/Not Resolved]
  - Asthenia [Not Recovered/Not Resolved]
  - Tremor [Not Recovered/Not Resolved]
  - Lethargy [Not Recovered/Not Resolved]
  - Disorientation [Not Recovered/Not Resolved]
  - Intentional product use issue [Unknown]
  - Wrong technique in product usage process [Unknown]

NARRATIVE: CASE EVENT DATE: 20250101
